FAERS Safety Report 25949668 (Version 2)
Quarter: 2025Q4

REPORT INFORMATION
  Report Type: Spontaneous
  Country: EU (occurrence: EU)
  Receive Date: 20251022
  Receipt Date: 20251225
  Transmission Date: 20260118
  Serious: Yes (Hospitalization, Other)
  Sender: SANOFI AVENTIS
  Company Number: EU-SA-2025SA302766

PATIENT
  Age: 1 Month
  Sex: Male
  Weight: 2.77 kg

DRUGS (5)
  1. BEYFORTUS [Suspect]
     Active Substance: NIRSEVIMAB-ALIP
     Indication: Immunisation
     Dosage: UNK
     Route: 065
     Dates: start: 202510, end: 202510
  2. Kanavit [Concomitant]
     Dosage: UNK
  3. PROPRANOLOL HYDROCHLORIDE [Concomitant]
     Active Substance: PROPRANOLOL HYDROCHLORIDE
     Dosage: UNK
  4. Maltofer [Concomitant]
     Dosage: UNK
  5. CHOLECALCIFEROL [Concomitant]
     Active Substance: CHOLECALCIFEROL
     Dosage: UNK

REACTIONS (11)
  - Autonomic nervous system imbalance [Recovered/Resolved]
  - Opisthotonus [Recovered/Resolved]
  - Cough [Recovered/Resolved]
  - Foaming at mouth [Recovered/Resolved]
  - Dyspnoea [Recovered/Resolved]
  - Crying [Recovered/Resolved]
  - Musculoskeletal stiffness [Recovered/Resolved]
  - Infantile spasms [Recovered/Resolved]
  - Neonatal seizure [Recovered/Resolved]
  - Immunisation reaction [Recovered/Resolved]
  - Anaemia [Recovered/Resolved]

NARRATIVE: CASE EVENT DATE: 20251006
